FAERS Safety Report 4759568-8 (Version None)
Quarter: 2005Q3

REPORT INFORMATION
  Report Type: 
  Country: None (occurrence: None)
  Receive Date: 20050901
  Receipt Date: 20050103
  Transmission Date: 20060218
  Serious: Yes (Hospitalization)
  Sender: FDA-Public Use
  Company Number: CH-MERCK-0501CHE00001

PATIENT
  Age: 50 Year
  Sex: Female

DRUGS (6)
  1. ACETAMINOPHEN [Suspect]
     Indication: INJURY
     Route: 065
     Dates: start: 20040526, end: 20040529
  2. DALTEPARIN SODIUM [Suspect]
     Route: 058
     Dates: start: 20040526, end: 20040529
  3. DIAZEPAM [Concomitant]
     Indication: MENTAL DISORDER
     Route: 048
     Dates: start: 20040526, end: 20040529
  4. THIAMINE HYDROCHLORIDE [Concomitant]
     Route: 048
  5. HALOPERIDOL [Concomitant]
     Indication: MENTAL DISORDER
     Route: 048
     Dates: start: 20040527, end: 20040528
  6. VIOXX [Suspect]
     Indication: INJURY
     Route: 048
     Dates: start: 20040526, end: 20040529

REACTIONS (7)
  - BLOOD GLUCOSE INCREASED [None]
  - COAGULOPATHY [None]
  - GENERAL SYMPTOM [None]
  - HEPATIC CIRRHOSIS [None]
  - HEPATIC STEATOSIS [None]
  - HEPATOCELLULAR DAMAGE [None]
  - THROMBOCYTOPENIA [None]
